FAERS Safety Report 14586034 (Version 6)
Quarter: 2019Q1

REPORT INFORMATION
  Report Type: Spontaneous
  Country: DE (occurrence: DE)
  Receive Date: 20180301
  Receipt Date: 20190323
  Transmission Date: 20190417
  Serious: Yes (Other)
  Sender: FDA-Public Use
  Company Number: PHHY2016DE186127

PATIENT
  Sex: Female
  Weight: 43 kg

DRUGS (10)
  1. GRANISETRON [Concomitant]
     Active Substance: GRANISETRON
     Indication: PREMEDICATION
     Dosage: 1 MG, 30 MIN BEFORE
     Route: 065
  2. 5-FU ^MEDAC^ [Suspect]
     Active Substance: FLUOROURACIL
     Dosage: 843 MG, CYCLIC
     Route: 042
     Dates: start: 20160808
  3. 5-FU ^MEDAC^ [Suspect]
     Active Substance: FLUOROURACIL
     Dosage: 843 MG, CYCLIC
     Route: 042
     Dates: start: 20161010
  4. ONCOFOLIC [Concomitant]
     Active Substance: FOLATE SODIUM
     Indication: ADENOCARCINOMA OF COLON
     Dosage: 300 MG, CYCLIC
     Route: 042
     Dates: start: 20160509
  5. ONCOFOLIC [Concomitant]
     Active Substance: FOLATE SODIUM
     Dosage: 300 MG, CYCLIC
     Route: 042
     Dates: start: 20161010
  6. OXALIPLATIN. [Suspect]
     Active Substance: OXALIPLATIN
     Indication: ADENOCARCINOMA OF COLON
     Dosage: 89 MG, CYCLIC
     Route: 042
     Dates: start: 20160425
  7. OXALIPLATIN. [Suspect]
     Active Substance: OXALIPLATIN
     Dosage: 89 MG, CYCLIC
     Route: 042
     Dates: start: 20160808
  8. OXALIPLATIN. [Suspect]
     Active Substance: OXALIPLATIN
     Dosage: 89 MG, CYCLIC
     Route: 042
     Dates: start: 20161010
  9. 5-FU ^MEDAC^ [Suspect]
     Active Substance: FLUOROURACIL
     Indication: ADENOCARCINOMA OF COLON
     Dosage: 843 MG, CYCLIC
     Route: 042
     Dates: start: 20160509
  10. ONCOFOLIC [Concomitant]
     Active Substance: FOLATE SODIUM
     Dosage: 300 MG, CYCLIC
     Route: 042
     Dates: start: 20160809

REACTIONS (1)
  - Thrombotic thrombocytopenic purpura [Recovered/Resolved]

NARRATIVE: CASE EVENT DATE: 20160822
